FAERS Safety Report 21356067 (Version 1)
Quarter: 2022Q3

REPORT INFORMATION
  Report Type: Spontaneous
  Country: US (occurrence: US)
  Receive Date: 20220920
  Receipt Date: 20220920
  Transmission Date: 20221027
  Serious: Yes (Other)
  Sender: FDA-Public Use
  Company Number: US-PFIZER INC-202201173401

PATIENT
  Age: 51 Year
  Sex: Female

DRUGS (1)
  1. AZITHROMYCIN [Suspect]
     Active Substance: AZITHROMYCIN
     Indication: Ear infection
     Dosage: UNK
     Dates: start: 20181001

REACTIONS (5)
  - Deafness [Unknown]
  - Malaise [Unknown]
  - Cough [Unknown]
  - Illness [Unknown]
  - Tinnitus [Unknown]
